FAERS Safety Report 7571445-6 (Version None)
Quarter: 2011Q2

REPORT INFORMATION
  Report Type: 
  Country: None (occurrence: None)
  Receive Date: 20110623
  Receipt Date: 20110623
  Transmission Date: 20111010
  Serious: Yes (Other)
  Sender: FDA-Public Use
  Company Number: None

PATIENT
  Age: 41 Year
  Sex: Female
  Weight: 84.369 kg

DRUGS (1)
  1. SINGULAIR [Suspect]
     Indication: ASTHMA
     Dosage: 1 10TABLET 1X DAILY -AT NIGHT PO
     Route: 048
     Dates: start: 20110607, end: 20110620

REACTIONS (20)
  - COUGH [None]
  - FEAR [None]
  - SINUS HEADACHE [None]
  - SKIN BURNING SENSATION [None]
  - NASAL CONGESTION [None]
  - OROPHARYNGEAL PAIN [None]
  - DIARRHOEA [None]
  - RESTLESSNESS [None]
  - ABDOMINAL PAIN UPPER [None]
  - HEADACHE [None]
  - IRRITABILITY [None]
  - ANXIETY [None]
  - INSOMNIA [None]
  - PANIC ATTACK [None]
  - AGITATION [None]
  - DEPRESSION [None]
  - EAR PAIN [None]
  - MOOD ALTERED [None]
  - FATIGUE [None]
  - TREMOR [None]
